FAERS Safety Report 20691615 (Version 2)
Quarter: 2022Q2

REPORT INFORMATION
  Report Type: Report from Study
  Country: EG (occurrence: EG)
  Receive Date: 20220408
  Receipt Date: 20220412
  Transmission Date: 20220721
  Serious: Yes (Hospitalization, Other)
  Sender: FDA-Public Use
  Company Number: EG-NOVARTISPH-NVSC2022EG076752

PATIENT
  Age: 70 Year
  Sex: Female

DRUGS (11)
  1. VALSARTAN [Suspect]
     Active Substance: VALSARTAN
     Indication: Cardiac failure
     Dosage: 1 DOSAGE FORM, BID
     Route: 065
     Dates: start: 2012, end: 20220220
  2. CARVEDILOL [Concomitant]
     Active Substance: CARVEDILOL
     Indication: Cardiac failure
     Dosage: 1 DOSAGE FORM, BID
     Route: 048
     Dates: start: 202105
  3. CORDARONE [Concomitant]
     Active Substance: AMIODARONE HYDROCHLORIDE
     Indication: Cardiac failure
     Dosage: 1 DOSAGE FORM (ALTERNATING DAYS)
     Route: 048
     Dates: start: 202105
  4. EXAMIDE [Concomitant]
     Indication: Polyuria
     Dosage: 10 MG, QD (ONE TAB EVERY MORNING )
     Route: 048
     Dates: start: 202105, end: 20220402
  5. EXAMIDE [Concomitant]
     Dosage: 10 MG, QD (ONE TAB EVERY MORNING )
     Route: 048
     Dates: start: 20220402
  6. AIRONYL [Concomitant]
     Indication: Cardiac failure
     Dosage: 1 DOSAGE FORM, QD (ONE TAB AFTER LUNCH)
     Route: 048
     Dates: start: 202105
  7. CRESTOR [Concomitant]
     Active Substance: ROSUVASTATIN CALCIUM
     Indication: Cardiac failure
     Dosage: 1 DOSAGE FORM, QD (ONE TABLET IN THE EVENING)
     Route: 048
     Dates: start: 202202
  8. DAPAGLIFLOZIN [Concomitant]
     Active Substance: DAPAGLIFLOZIN
     Indication: Cardiac failure
     Dosage: 10 MG, QD (ONE TABLET AFTER BREAKFAST)
     Route: 048
     Dates: start: 202202
  9. ASPIRIN [Concomitant]
     Active Substance: ASPIRIN
     Indication: Cardiac failure
     Dosage: 1 DOSAGE FORM, QD (AFTER BREAKFAST)
     Route: 048
     Dates: start: 202202
  10. ENTRESTO [Concomitant]
     Active Substance: SACUBITRIL\VALSARTAN
     Indication: Cardiac failure
     Dosage: 50 MG, BID
     Route: 048
     Dates: start: 20220220
  11. ENTRESTO [Concomitant]
     Active Substance: SACUBITRIL\VALSARTAN
     Dosage: 100 MG, BID
     Route: 048
     Dates: start: 20220402

REACTIONS (10)
  - Cardiac arrest [Recovered/Resolved]
  - Ejection fraction decreased [Unknown]
  - Chest discomfort [Unknown]
  - Pulmonary oedema [Unknown]
  - Fall [Recovered/Resolved]
  - Thermal burn [Recovered/Resolved]
  - Thyroid disorder [Unknown]
  - Syncope [Recovered/Resolved]
  - Drug ineffective [Recovered/Resolved]
  - Productive cough [Recovering/Resolving]

NARRATIVE: CASE EVENT DATE: 20210101
